FAERS Safety Report 9109204 (Version 1)
Quarter: 2013Q1

REPORT INFORMATION
  Report Type: Spontaneous
  Country: ES (occurrence: ES)
  Receive Date: 20130222
  Receipt Date: 20130222
  Transmission Date: 20140127
  Serious: Yes (Hospitalization, Other)
  Sender: FDA-Public Use
  Company Number: ES-009507513-1302ESP009643

PATIENT
  Age: 49 Year
  Sex: Female
  Weight: 65 kg

DRUGS (4)
  1. REBETOL [Suspect]
     Indication: HEPATITIS C
     Dosage: 1000MG/DAY
     Route: 065
     Dates: start: 20121112, end: 20121126
  2. PEGASYS [Suspect]
     Indication: HEPATITIS C
     Dosage: 180 MICROGRAMS/WEEK
     Route: 065
     Dates: start: 20121112, end: 20121126
  3. TELAPREVIR [Suspect]
     Indication: HEPATITIS C
     Dosage: 1125 MG/12 HOURS
     Route: 065
     Dates: start: 20121112, end: 20121126
  4. REVOLADE [Concomitant]
     Indication: THROMBOCYTOPENIA
     Dosage: 50 MG/DAY
     Route: 065
     Dates: start: 20121112, end: 20121126

REACTIONS (1)
  - Hepatic encephalopathy [Recovered/Resolved]
